FAERS Safety Report 5557358-X (Version None)
Quarter: 2007Q4

REPORT INFORMATION
  Report Type: 
  Country: None (occurrence: None)
  Receive Date: 20071214
  Receipt Date: 20071203
  Transmission Date: 20080405
  Serious: Yes (Hospitalization, Other)
  Sender: FDA-Public Use
  Company Number: US-ROCHE-487908

PATIENT
  Age: 49 Year
  Sex: Female

DRUGS (7)
  1. PEGASYS [Suspect]
     Route: 065
     Dates: start: 20061213, end: 20070205
  2. PEGASYS [Suspect]
     Route: 065
     Dates: start: 20070314, end: 20070329
  3. PEGASYS [Suspect]
     Route: 065
     Dates: start: 20070411, end: 20070627
  4. PEGASYS [Suspect]
     Route: 065
     Dates: start: 20070627
  5. COPEGUS [Suspect]
     Route: 065
     Dates: start: 20061213, end: 20070205
  6. COPEGUS [Suspect]
     Route: 065
     Dates: start: 20070314, end: 20070329
  7. COPEGUS [Suspect]
     Route: 065
     Dates: start: 20070411, end: 20070501

REACTIONS (16)
  - ANAEMIA [None]
  - ANTIBODY TEST POSITIVE [None]
  - ASTHENIA [None]
  - BLOOD DISORDER [None]
  - BLOOD SODIUM INCREASED [None]
  - CONTUSION [None]
  - COUGH [None]
  - FATIGUE [None]
  - HEADACHE [None]
  - HYPERSENSITIVITY [None]
  - INJECTION SITE BRUISING [None]
  - PLATELET COUNT DECREASED [None]
  - RETCHING [None]
  - RHINITIS ALLERGIC [None]
  - WEIGHT DECREASED [None]
  - WHITE BLOOD CELL COUNT DECREASED [None]
